FAERS Safety Report 20412676 (Version 1)
Quarter: 2022Q1

REPORT INFORMATION
  Report Type: Spontaneous
  Country: KR (occurrence: KR)
  Receive Date: 20220201
  Receipt Date: 20220201
  Transmission Date: 20220423
  Serious: Yes (Other)
  Sender: FDA-Public Use
  Company Number: KR-NORGINE LIMITED-NOR202200506

PATIENT
  Age: 54 Year
  Sex: Female

DRUGS (1)
  1. PLENVU [Suspect]
     Active Substance: ASCORBIC ACID\POLYETHYLENE GLYCOL 3350\POTASSIUM CHLORIDE\SODIUM ASCORBATE\SODIUM CHLORIDE\SODIUM SU
     Indication: Product used for unknown indication
     Route: 048
     Dates: start: 20220104

REACTIONS (6)
  - Genital haemorrhage [Unknown]
  - Dizziness [Unknown]
  - Urticaria [Unknown]
  - Hypersensitivity [Unknown]
  - Vomiting [Unknown]
  - Thirst [Unknown]
